FAERS Safety Report 25738806 (Version 1)
Quarter: 2025Q3

REPORT INFORMATION
  Report Type: Spontaneous
  Country: US (occurrence: US)
  Receive Date: 20250829
  Receipt Date: 20250829
  Transmission Date: 20251021
  Serious: Yes (Other)
  Sender: CONCORD BIOTECH LTD
  Company Number: US-CBL-003343

PATIENT
  Age: 14 Year
  Sex: Female

DRUGS (3)
  1. MYCOPHENOLATE MOFETIL [Suspect]
     Active Substance: MYCOPHENOLATE MOFETIL
     Indication: Takayasu^s arteritis
     Route: 065
  2. ADALIMUMAB [Suspect]
     Active Substance: ADALIMUMAB
     Indication: Takayasu^s arteritis
     Route: 065
  3. MYCOPHENOLATE MOFETIL [Suspect]
     Active Substance: MYCOPHENOLATE MOFETIL
     Indication: Takayasu^s arteritis
     Route: 065

REACTIONS (3)
  - Coccidioidomycosis [Recovering/Resolving]
  - Product use in unapproved indication [Unknown]
  - Chorioretinitis [Recovering/Resolving]
